FAERS Safety Report 10223047 (Version 1)
Quarter: 2014Q2

REPORT INFORMATION
  Report Type: Report from Study
  Country: US (occurrence: US)
  Receive Date: 20140607
  Receipt Date: 20140607
  Transmission Date: 20141212
  Serious: Yes (Hospitalization)
  Sender: FDA-Public Use
  Company Number: PHEH2014US011387

PATIENT
  Sex: Male

DRUGS (1)
  1. STALEVO [Suspect]
     Dosage: 200 MG, UNK
     Route: 048

REACTIONS (1)
  - Cerebrovascular accident [Unknown]
